FAERS Safety Report 7380868-X (Version None)
Quarter: 2011Q1

REPORT INFORMATION
  Report Type: 
  Country: None (occurrence: None)
  Receive Date: 20110329
  Receipt Date: 20110316
  Transmission Date: 20110831
  Serious: Yes (Hospitalization)
  Sender: FDA-Public Use
  Company Number: PHHY2010TW21278

PATIENT
  Sex: Male

DRUGS (1)
  1. GLEEVEC [Suspect]
     Indication: GASTROINTESTINAL STROMAL TUMOUR
     Dosage: 400 MG, DAILY
     Route: 048
     Dates: start: 20090622

REACTIONS (5)
  - MUSCULOSKELETAL DISORDER [None]
  - COLON CANCER [None]
  - SKIN EXFOLIATION [None]
  - NEOPLASM MALIGNANT [None]
  - PAIN [None]
